FAERS Safety Report 20798807 (Version 1)
Quarter: 2022Q2

REPORT INFORMATION
  Report Type: Spontaneous
  Country: CA (occurrence: None)
  Receive Date: 20220507
  Receipt Date: 20220507
  Transmission Date: 20220721
  Serious: Yes (Hospitalization)
  Sender: FDA-Public Use
  Company Number: CA-ROCHE-3088920

PATIENT
  Age: 30 Year
  Sex: Female
  Weight: 81 kg

DRUGS (3)
  1. PERJETA [Suspect]
     Active Substance: PERTUZUMAB
     Indication: HER2 positive breast cancer
     Route: 042
  2. TRASTUZUMAB [Suspect]
     Active Substance: TRASTUZUMAB
     Indication: Breast cancer
     Route: 065
  3. TAXOL [Concomitant]
     Active Substance: PACLITAXEL
     Indication: Breast cancer
     Dosage: SOLUTION INTRAVENOUS

REACTIONS (3)
  - Abdominal pain [Recovered/Resolved]
  - Diarrhoea [Recovered/Resolved]
  - Weight decreased [Recovered/Resolved]
